FAERS Safety Report 12969455 (Version 2)
Quarter: 2017Q1

REPORT INFORMATION
  Report Type: Spontaneous
  Country: US (occurrence: US)
  Receive Date: 20161123
  Receipt Date: 20170127
  Transmission Date: 20170428
  Serious: No
  Sender: FDA-Public Use
  Company Number: US-SHIRE-US201617258

PATIENT

DRUGS (1)
  1. XIIDRA [Suspect]
     Active Substance: LIFITEGRAST
     Indication: PRODUCT USED FOR UNKNOWN INDICATION
     Dosage: UNK, UNKNOWN
     Route: 047

REACTIONS (19)
  - Dry eye [Unknown]
  - Nausea [Unknown]
  - Foreign body sensation in eyes [Unknown]
  - Eye pruritus [Unknown]
  - Dysgeusia [Unknown]
  - Product use issue [Unknown]
  - Vision blurred [Unknown]
  - Abnormal sensation in eye [Unknown]
  - Pharyngeal paraesthesia [Unknown]
  - Eye irritation [Unknown]
  - Headache [Unknown]
  - Lacrimation increased [Unknown]
  - Secretion discharge [Unknown]
  - Obstruction [Unknown]
  - Sinus disorder [Unknown]
  - Eye paraesthesia [Unknown]
  - Throat irritation [Unknown]
  - Dry mouth [Unknown]
  - Rhinorrhoea [Unknown]
